FAERS Safety Report 19748824 (Version 1)
Quarter: 2021Q3

REPORT INFORMATION
  Report Type: Spontaneous
  Country: BR (occurrence: BR)
  Receive Date: 20210826
  Receipt Date: 20210826
  Transmission Date: 20211014
  Serious: Yes (Hospitalization, Other)
  Sender: FDA-Public Use
  Company Number: NVSC2021BR186880

PATIENT
  Age: 75 Year
  Sex: Female

DRUGS (1)
  1. ALPELISIB [Suspect]
     Active Substance: ALPELISIB
     Indication: PRODUCT USED FOR UNKNOWN INDICATION
     Dosage: UNK (STOPPED YESTERDAY)
     Route: 065
     Dates: start: 202012

REACTIONS (2)
  - Product use in unapproved indication [Unknown]
  - Diabetic ketoacidosis [Unknown]
